FAERS Safety Report 7115624-0 (Version None)
Quarter: 2010Q4

REPORT INFORMATION
  Report Type: 
  Country: None (occurrence: None)
  Receive Date: 20101117
  Receipt Date: 20101117
  Transmission Date: 20110411
  Serious: Yes (Hospitalization)
  Sender: FDA-Public Use
  Company Number: None

PATIENT
  Age: 10 Year
  Sex: Female
  Weight: 45.5 kg

DRUGS (2)
  1. CIDOFOVIR [Suspect]
     Indication: ANTIVIRAL TREATMENT
     Dosage: 150 MG TWICE WEEK PO
     Route: 048
     Dates: start: 20101026
  2. NEUPOGEN [Concomitant]

REACTIONS (3)
  - HUMAN HERPESVIRUS 6 INFECTION [None]
  - NEUTROPENIA [None]
  - PYREXIA [None]
